FAERS Safety Report 6379544-1 (Version None)
Quarter: 2009Q3

REPORT INFORMATION
  Report Type: 
  Country: None (occurrence: None)
  Receive Date: 20090928
  Receipt Date: 20090921
  Transmission Date: 20100115
  Serious: Yes (Hospitalization)
  Sender: FDA-Public Use
  Company Number: JP-BRISTOL-MYERS SQUIBB COMPANY-14786404

PATIENT
  Age: 63 Year
  Sex: Male

DRUGS (7)
  1. CYCLOPHOSPHAMIDE [Suspect]
     Indication: LYMPHOMA
  2. VINCRISTINE SULFATE [Suspect]
     Indication: LYMPHOMA
  3. DOXORUBICIN HCL [Suspect]
     Indication: LYMPHOMA
  4. PREDNISOLONE [Suspect]
     Indication: LYMPHOMA
  5. PROCARBAZINE [Suspect]
     Indication: LYMPHOMA
  6. RITUXIMAB [Suspect]
     Indication: LYMPHOMA
  7. CLADRIBINE [Suspect]
     Indication: LYMPHOMA
     Route: 042

REACTIONS (2)
  - FEBRILE NEUTROPENIA [None]
  - NOCARDIOSIS [None]
